FAERS Safety Report 8404328-X (Version None)
Quarter: 2012Q2

REPORT INFORMATION
  Report Type: 
  Country: None (occurrence: None)
  Receive Date: 20120601
  Receipt Date: 20120523
  Transmission Date: 20120825
  Serious: Yes (Hospitalization, Other)
  Sender: FDA-Public Use
  Company Number: US-ASTRAZENECA-2010SE31395

PATIENT
  Age: 47 Year
  Sex: Female

DRUGS (2)
  1. SEROQUEL [Suspect]
     Route: 048
  2. NEXIUM [Suspect]
     Route: 048

REACTIONS (8)
  - GASTRIC DISORDER [None]
  - DRUG DOSE OMISSION [None]
  - INSOMNIA [None]
  - VOMITING [None]
  - CHEST PAIN [None]
  - ABDOMINAL PAIN UPPER [None]
  - ABASIA [None]
  - PAIN [None]
